FAERS Safety Report 8516103-6 (Version None)
Quarter: 2012Q3

REPORT INFORMATION
  Report Type: 
  Country: None (occurrence: None)
  Receive Date: 20120717
  Receipt Date: 20120529
  Transmission Date: 20120928
  Serious: No
  Sender: FDA-Public Use
  Company Number: US-NOVEN-12US004722

PATIENT
  Sex: Female

DRUGS (7)
  1. FENTANYL [Suspect]
     Indication: MIGRAINE
     Dosage: 25 UG/HR, UNK
  2. CYCLOBENAZPRINE [Concomitant]
     Indication: PRODUCT USED FOR UNKNOWN INDICATION
     Route: 048
  3. RYTHMOL [Concomitant]
     Indication: CARDIAC DISORDER
     Route: 048
  4. VITAMIN E                          /00110501/ [Concomitant]
     Indication: PRODUCT USED FOR UNKNOWN INDICATION
     Route: 048
  5. FENTANYL [Suspect]
     Indication: NECK INJURY
  6. FENTANYL [Suspect]
     Indication: PAIN
     Dosage: 25 UG/HR ONE PATCH EVERY 48 HOURS
     Route: 062
     Dates: start: 20120301
  7. ATENOLOL [Concomitant]
     Indication: CARDIAC DISORDER
     Route: 048

REACTIONS (2)
  - INADEQUATE ANALGESIA [None]
  - PRODUCT QUALITY ISSUE [None]
